FAERS Safety Report 6419152-7 (Version None)
Quarter: 2009Q4

REPORT INFORMATION
  Report Type: 
  Country: None (occurrence: None)
  Receive Date: 20091028
  Receipt Date: 20091028
  Transmission Date: 20100525
  Serious: Yes (Other)
  Sender: FDA-Public Use
  Company Number: None

PATIENT
  Age: 58 Year
  Sex: Male
  Weight: 81.6475 kg

DRUGS (1)
  1. MODAFINIL [Suspect]
     Indication: DEPRESSION
     Dosage: 200 BID PO
     Route: 048
     Dates: start: 20070110, end: 20091010

REACTIONS (1)
  - HEARING IMPAIRED [None]
